FAERS Safety Report 21161803 (Version 3)
Quarter: 2022Q4

REPORT INFORMATION
  Report Type: Spontaneous
  Country: JP (occurrence: JP)
  Receive Date: 20220802
  Receipt Date: 20221116
  Transmission Date: 20230112
  Serious: Yes (Hospitalization)
  Sender: FDA-Public Use
  Company Number: JP-MSD-M2022-31003

PATIENT
  Age: 82 Year
  Sex: Female

DRUGS (11)
  1. LAGEVRIO [Suspect]
     Active Substance: MOLNUPIRAVIR
     Indication: COVID-19 treatment
     Dosage: 800 MILLIGRAM, BID
     Route: 048
     Dates: start: 20220727, end: 20220801
  2. MAGNESIUM OXIDE [Concomitant]
     Active Substance: MAGNESIUM OXIDE
     Dosage: 2 DOSAGE FORM, TID
     Route: 048
  3. COMTAN [Concomitant]
     Active Substance: ENTACAPONE
     Dosage: 1 DOSAGE FORM, TID
     Route: 048
  4. ZONISAMIDE [Concomitant]
     Active Substance: ZONISAMIDE
     Dosage: 1 DOSAGE FORM, BID
     Route: 048
  5. CARBIDOPA\LEVODOPA [Concomitant]
     Active Substance: CARBIDOPA\LEVODOPA
     Dosage: 5 TABLETS/DAY (2-1-2)
     Route: 048
  6. AMLODIPINE BESYLATE [Concomitant]
     Active Substance: AMLODIPINE BESYLATE
     Dosage: 1 DOSAGE FORM, QD
     Route: 048
  7. MIROGABALIN BESYLATE [Concomitant]
     Active Substance: MIROGABALIN BESYLATE
     Dosage: 1 DOSAGE FORM, BID
     Route: 048
  8. ELOBIXIBAT [Concomitant]
     Active Substance: ELOBIXIBAT
     Dosage: 1 DOSAGE FORM, QD
     Route: 048
  9. NEUPRO [Concomitant]
     Active Substance: ROTIGOTINE
     Dosage: 2 DOSAGE FORM, QD
     Route: 003
  10. LEVOFLOXACIN HEMIHYDRATE [Concomitant]
     Active Substance: LEVOFLOXACIN
     Dosage: 1 DOSAGE FORM, QD
     Route: 048
     Dates: start: 20220721
  11. CALONAL [Concomitant]
     Active Substance: ACETAMINOPHEN
     Dosage: 2 DOSAGE FORM, BID
     Route: 048
     Dates: start: 20220727

REACTIONS (1)
  - Oxygen saturation decreased [Recovered/Resolved]

NARRATIVE: CASE EVENT DATE: 20220727
